FAERS Safety Report 23028715 (Version 1)
Quarter: 2023Q4

REPORT INFORMATION
  Report Type: Spontaneous
  Country: US (occurrence: US)
  Receive Date: 20231004
  Receipt Date: 20231004
  Transmission Date: 20240110
  Serious: Yes (Hospitalization, Other)
  Sender: FDA-Public Use
  Company Number: US-SUN PHARMACEUTICAL INDUSTRIES LTD-2023R1-410341

PATIENT
  Age: 26 Year
  Sex: Male
  Weight: 106.6 kg

DRUGS (1)
  1. LOPERAMIDE [Suspect]
     Active Substance: LOPERAMIDE
     Indication: Diarrhoea
     Dosage: UNK (MULTIPLE TIMES A DAY)
     Route: 065

REACTIONS (2)
  - Heat stroke [Recovered/Resolved]
  - Acute kidney injury [Recovered/Resolved]
